FAERS Safety Report 21178325 (Version 1)
Quarter: 2022Q3

REPORT INFORMATION
  Report Type: Other
  Country: GB (occurrence: GB)
  Receive Date: 20220805
  Receipt Date: 20220805
  Transmission Date: 20221027
  Serious: No
  Sender: FDA-Public Use
  Company Number: GB-MHRA-MED-202207220928200990-NPTHF

PATIENT
  Age: 26 Year
  Sex: Male

DRUGS (1)
  1. SERTRALINE [Suspect]
     Active Substance: SERTRALINE HYDROCHLORIDE
     Indication: Depressed mood
     Dosage: 50 MG, QD (TABLET UNCOATED)
     Route: 048
     Dates: start: 20220317, end: 20220324

REACTIONS (1)
  - Testicular pain [Recovered/Resolved]

NARRATIVE: CASE EVENT DATE: 20220317
